FAERS Safety Report 13057456 (Version 1)
Quarter: 2016Q4

REPORT INFORMATION
  Report Type: Spontaneous
  Country: US (occurrence: US)
  Receive Date: 20161223
  Receipt Date: 20161223
  Transmission Date: 20170207
  Serious: No
  Sender: FDA-Public Use
  Company Number: US-009507513-1612USA005465

PATIENT

DRUGS (4)
  1. RIBAVIRIN. [Suspect]
     Active Substance: RIBAVIRIN
     Route: 048
  2. WARFARIN [Interacting]
     Active Substance: WARFARIN
     Dosage: 125% TOTAL INCREASE
  3. DASABUVIR [Interacting]
     Active Substance: DASABUVIR
     Dosage: UNK
  4. OMBITASVIR (+) PARITAPREVIR (+) RITONAVIR [Interacting]
     Active Substance: OMBITASVIR\PARITAPREVIR\RITONAVIR

REACTIONS (4)
  - Anticoagulation drug level below therapeutic [Recovered/Resolved]
  - International normalised ratio increased [Unknown]
  - Drug withdrawal syndrome [Unknown]
  - Drug interaction [Unknown]
